FAERS Safety Report 6983346 (Version 2)
Quarter: 2015Q3

REPORT INFORMATION
  Report Type: Spontaneous
  Country: US (occurrence: US)
  Receive Date: 20090430
  Receipt Date: 20150903
  Transmission Date: 20151125
  Serious: Yes (Hospitalization, Other)
  Sender: FDA-Public Use
  Company Number: US-ASTRAZENECA-2009UW05838

PATIENT
  Age: 54 Year
  Sex: Female
  Weight: 56.7 kg

DRUGS (20)
  1. PROTONIX [Suspect]
     Active Substance: PANTOPRAZOLE SODIUM
     Route: 065
  2. FLAGYL [Concomitant]
     Active Substance: METRONIDAZOLE\METRONIDAZOLE HYDROCHLORIDE
     Route: 041
     Dates: start: 20150809, end: 20150814
  3. GABAPENTIN. [Concomitant]
     Active Substance: GABAPENTIN
     Indication: PANIC ATTACK
     Route: 048
     Dates: start: 201501
  4. PROBIOTIC [Concomitant]
     Active Substance: PROBIOTICS NOS
     Indication: IMMUNE SYSTEM DISORDER
     Dosage: THREE TIMES A DAY
     Route: 048
     Dates: start: 20150810
  5. CLONAPINE [Concomitant]
  6. NEXIUM [Suspect]
     Active Substance: ESOMEPRAZOLE MAGNESIUM
     Indication: BARRETT^S OESOPHAGUS
     Route: 048
  7. NEXIUM [Suspect]
     Active Substance: ESOMEPRAZOLE MAGNESIUM
     Indication: IMPAIRED GASTRIC EMPTYING
     Route: 048
     Dates: start: 2001
  8. IRON [Concomitant]
     Active Substance: IRON
     Route: 048
     Dates: start: 20150810
  9. NEXIUM [Suspect]
     Active Substance: ESOMEPRAZOLE MAGNESIUM
     Indication: IMPAIRED GASTRIC EMPTYING
     Route: 048
  10. NEXIUM [Suspect]
     Active Substance: ESOMEPRAZOLE MAGNESIUM
     Indication: IMPAIRED GASTRIC EMPTYING
     Route: 048
  11. NEXIUM [Suspect]
     Active Substance: ESOMEPRAZOLE MAGNESIUM
     Indication: BARRETT^S OESOPHAGUS
     Route: 048
     Dates: start: 2001
  12. LISINOPRIL. [Suspect]
     Active Substance: LISINOPRIL
     Indication: CARDIAC DISORDER
     Route: 048
     Dates: start: 2014
  13. TRAMADOL. [Concomitant]
     Active Substance: TRAMADOL
     Indication: BURSITIS
     Route: 048
     Dates: start: 2015
  14. NEXIUM [Suspect]
     Active Substance: ESOMEPRAZOLE MAGNESIUM
     Indication: SCLERODERMA
     Route: 048
  15. NEXIUM [Suspect]
     Active Substance: ESOMEPRAZOLE MAGNESIUM
     Indication: BARRETT^S OESOPHAGUS
     Route: 048
  16. NEXIUM [Suspect]
     Active Substance: ESOMEPRAZOLE MAGNESIUM
     Indication: SCLERODERMA
     Route: 048
     Dates: start: 2001
  17. CARVEDILOL. [Concomitant]
     Active Substance: CARVEDILOL
     Indication: CARDIAC DISORDER
     Route: 048
     Dates: start: 200610
  18. NEXIUM [Suspect]
     Active Substance: ESOMEPRAZOLE MAGNESIUM
     Indication: SCLERODERMA
     Route: 048
  19. M [Concomitant]
     Indication: PNEUMONIA
     Route: 048
     Dates: start: 20150815
  20. LYRICA [Concomitant]
     Active Substance: PREGABALIN

REACTIONS (26)
  - Off label use [Unknown]
  - Pain [Unknown]
  - Dyspepsia [Unknown]
  - Product use issue [Unknown]
  - Drug dose omission [Unknown]
  - Off label use [Unknown]
  - Pneumonia [Unknown]
  - Pseudomonas infection [Unknown]
  - Burning sensation [Unknown]
  - Myocardial infarction [Unknown]
  - Impaired gastric emptying [Unknown]
  - Hernia [Unknown]
  - Asthenia [Unknown]
  - Anaemia [Unknown]
  - Mouth haemorrhage [Unknown]
  - Haematemesis [Unknown]
  - Oesophageal ulcer [Unknown]
  - Ulcer [Unknown]
  - Oesophageal pain [Unknown]
  - Dysphagia [Unknown]
  - Choking [Unknown]
  - Oesophageal discomfort [Unknown]
  - Rectal haemorrhage [Unknown]
  - Oesophagitis [Unknown]
  - Dyspepsia [Unknown]
  - Vomiting [Unknown]

NARRATIVE: CASE EVENT DATE: 2001
